FAERS Safety Report 7018718-3 (Version None)
Quarter: 2010Q3

REPORT INFORMATION
  Report Type: 
  Country: None (occurrence: None)
  Receive Date: 20100928
  Receipt Date: 20100922
  Transmission Date: 20110219
  Serious: Yes (Death)
  Sender: FDA-Public Use
  Company Number: US-CEPHALON-2010005040

PATIENT
  Sex: Male

DRUGS (3)
  1. ACTIQ [Suspect]
     Dates: end: 20091001
  2. CITALOPRAM HYDROBROMIDE [Suspect]
     Dates: end: 20091001
  3. AMBIEN CR [Suspect]
     Dates: end: 20091001

REACTIONS (1)
  - MULTIPLE DRUG OVERDOSE [None]
